FAERS Safety Report 11105302 (Version 1)
Quarter: 2015Q2

REPORT INFORMATION
  Report Type: Spontaneous
  Country: TW (occurrence: TW)
  Receive Date: 20150512
  Receipt Date: 20150512
  Transmission Date: 20150821
  Serious: Yes (Hospitalization)
  Sender: FDA-Public Use
  Company Number: TW-MYLANLABS-2015M1015560

PATIENT

DRUGS (2)
  1. LITHIUM. [Interacting]
     Active Substance: LITHIUM
     Indication: BIPOLAR I DISORDER
     Dosage: TABLET STRENGTH 300MG
     Route: 065
  2. PARACETAMOL,TRAMADOL [Suspect]
     Active Substance: ACETAMINOPHEN\TRAMADOL
     Indication: ARTHRALGIA
     Route: 065

REACTIONS (2)
  - Drug interaction [Recovered/Resolved]
  - Psychotic disorder [Recovered/Resolved]
